FAERS Safety Report 18343256 (Version 1)
Quarter: 2020Q4

REPORT INFORMATION
  Report Type: Spontaneous
  Country: US (occurrence: US)
  Receive Date: 20201003
  Receipt Date: 20201003
  Transmission Date: 20210113
  Serious: Yes (Other)
  Sender: FDA-Public Use
  Company Number: None

PATIENT
  Age: 46 Year
  Sex: Female
  Weight: 51.75 kg

DRUGS (2)
  1. NATURE-THROID [Suspect]
     Active Substance: THYROID, PORCINE
     Indication: BASEDOW^S DISEASE
     Dosage: ?          QUANTITY:30 TABLET(S);?
     Route: 048
     Dates: start: 20200729, end: 20200828
  2. IRON PILLS [Concomitant]
     Active Substance: IRON

REACTIONS (2)
  - Recalled product administered [None]
  - Condition aggravated [None]

NARRATIVE: CASE EVENT DATE: 20200729
